FAERS Safety Report 18762767 (Version 1)
Quarter: 2021Q1

REPORT INFORMATION
  Report Type: Spontaneous
  Country: US (occurrence: US)
  Receive Date: 20210120
  Receipt Date: 20210120
  Transmission Date: 20210419
  Serious: No
  Sender: FDA-Public Use
  Company Number: US-BIOVITRUM-2021US0478

PATIENT
  Age: 5 Month
  Sex: Male

DRUGS (1)
  1. SYNAGIS [Suspect]
     Active Substance: PALIVIZUMAB
     Indication: PRODUCT USED FOR UNKNOWN INDICATION
     Dosage: SYNAGIS SDV 50MG/0.5ML
     Route: 058
     Dates: start: 202012

REACTIONS (2)
  - Incorrect route of product administration [Unknown]
  - Rash [Unknown]

NARRATIVE: CASE EVENT DATE: 202012
